FAERS Safety Report 13301784 (Version 1)
Quarter: 2017Q1

REPORT INFORMATION
  Report Type: Spontaneous
  Country: US (occurrence: US)
  Receive Date: 20170307
  Receipt Date: 20170307
  Transmission Date: 20170428
  Serious: Yes (Life-Threatening, Hospitalization)
  Sender: FDA-Public Use
  Company Number: None

PATIENT
  Age: 59 Year
  Sex: Male
  Weight: 77.18 kg

DRUGS (4)
  1. AMITRIPITYLIN [Concomitant]
  2. VITAMIN C [Concomitant]
     Active Substance: ASCORBIC ACID
  3. SUMATRIPTAN TABLET USP 100 MG [Suspect]
     Active Substance: SUMATRIPTAN SUCCINATE
     Indication: MIGRAINE
     Dosage: ?          QUANTITY:STOPPED .-. ..;?
     Route: 048
     Dates: end: 20131220
  4. PANTOPROZOLE [Concomitant]

REACTIONS (3)
  - Costochondritis [None]
  - Musculoskeletal chest pain [None]
  - Myocardial infarction [None]

NARRATIVE: CASE EVENT DATE: 20131217
